FAERS Safety Report 7603465-7 (Version None)
Quarter: 2011Q3

REPORT INFORMATION
  Report Type: 
  Country: None (occurrence: None)
  Receive Date: 20110701
  Receipt Date: 20110617
  Transmission Date: 20111222
  Serious: Yes (Hospitalization)
  Sender: FDA-Public Use
  Company Number: AUR-APL-2011-02138

PATIENT
  Age: 70 Year
  Sex: Male
  Weight: 75 kg

DRUGS (12)
  1. EFFEXOR [Concomitant]
  2. LISINOPRIL [Suspect]
     Indication: PRODUCT USED FOR UNKNOWN INDICATION
     Dosage: ORAL
     Route: 048
     Dates: start: 20080921, end: 20090626
  3. SPIRIVA [Concomitant]
  4. ISOSORBIDE MONONITRATE [Concomitant]
  5. ASPIRIN [Concomitant]
  6. VALSARTAN [Concomitant]
  7. EPLERENONE; PLACEBO (EPLERENONE) [Suspect]
     Indication: CARDIAC FAILURE
     Dosage: 25 MG, 1 D, ORAL; 50 MG, 1 D, ORAL
     Route: 048
     Dates: start: 20081103, end: 20090625
  8. EPLERENONE; PLACEBO (EPLERENONE) [Suspect]
     Indication: CARDIAC FAILURE
     Dosage: 25 MG, 1 D, ORAL; 50 MG, 1 D, ORAL
     Route: 048
     Dates: start: 20081006, end: 20081102
  9. THYRAX (LEVOTHYROXINE) [Concomitant]
  10. FUROSEMIDE [Suspect]
     Indication: CARDIAC FAILURE
     Dosage: 160 MG (80 MG, 2 IN 1 D), ORAL
     Route: 048
     Dates: start: 20080201, end: 20090625
  11. METFORMIN HCL [Concomitant]
  12. METOPROLOL TARTRATE [Suspect]
     Indication: PRODUCT USED FOR UNKNOWN INDICATION
     Dates: start: 20081004, end: 20090626

REACTIONS (7)
  - BLOOD BILIRUBIN INCREASED [None]
  - RENAL IMPAIRMENT [None]
  - CONDITION AGGRAVATED [None]
  - MALAISE [None]
  - CARDIAC FAILURE [None]
  - BLOOD ALKALINE PHOSPHATASE INCREASED [None]
  - GAMMA-GLUTAMYLTRANSFERASE INCREASED [None]
